FAERS Safety Report 4570651-2 (Version None)
Quarter: 2005Q1

REPORT INFORMATION
  Report Type: 
  Country: None (occurrence: None)
  Receive Date: 20050131
  Receipt Date: 20050121
  Transmission Date: 20050727
  Serious: Yes (Other)
  Sender: FDA-Public Use
  Company Number: 2005017933

PATIENT
  Age: 59 Year
  Sex: Male
  Weight: 77.1115 kg

DRUGS (4)
  1. LIPITOR [Suspect]
     Indication: BLOOD CHOLESTEROL INCREASED
     Dosage: 10 MG (10 MG , 1 IN 1 D), ORAL
     Route: 048
     Dates: start: 20030101
  2. BUPROPION (BUPROPION) [Concomitant]
  3. MULTIVITAMINS (ASCORBIC ACID, ERGOCLACIFEROL, FOLIC ACID, NICOTINAMIDE [Concomitant]
  4. TOCOPHEROL (TOCOPHEROL) [Concomitant]

REACTIONS (4)
  - RETINITIS [None]
  - RETINOPATHY [None]
  - VISION BLURRED [None]
  - VISUAL DISTURBANCE [None]
